FAERS Safety Report 21524308 (Version 2)
Quarter: 2022Q4

REPORT INFORMATION
  Report Type: Spontaneous
  Country: US (occurrence: US)
  Receive Date: 20221029
  Receipt Date: 20221219
  Transmission Date: 20230113
  Serious: No
  Sender: FDA-Public Use
  Company Number: US-NOVARTISTESTPH-NVSC2022US243936

PATIENT
  Sex: Female

DRUGS (2)
  1. COSENTYX [Suspect]
     Active Substance: SECUKINUMAB
     Indication: Product used for unknown indication
     Dosage: 300 MG, Q2W
     Route: 058
     Dates: start: 20181205
  2. DUPILUMAB [Suspect]
     Active Substance: DUPILUMAB
     Indication: Product used for unknown indication
     Dosage: 300 MG, Q2W (VIA PREFILLED SYRINGE)
     Route: 058
     Dates: start: 20181205

REACTIONS (3)
  - Abdominal pain upper [Unknown]
  - Headache [Unknown]
  - Drug ineffective [Unknown]
